FAERS Safety Report 7032049-7 (Version None)
Quarter: 2010Q4

REPORT INFORMATION
  Report Type: 
  Country: None (occurrence: None)
  Receive Date: 20101007
  Receipt Date: 20100924
  Transmission Date: 20110411
  Serious: Yes (Hospitalization, Other)
  Sender: FDA-Public Use
  Company Number: US-ELI_LILLY_AND_COMPANY-US201002004176

PATIENT
  Sex: Female

DRUGS (11)
  1. FORTEO [Suspect]
     Indication: OSTEOPOROSIS
     Dosage: 20 UG, DAILY (1/D)
  2. WARFARIN SODIUM [Concomitant]
  3. ARICEPT [Concomitant]
  4. METOPROLOL TARTRATE [Concomitant]
  5. TYLENOL (CAPLET) [Concomitant]
  6. AVALIDE [Concomitant]
  7. SIMVASTATIN [Concomitant]
  8. VITAMIN D [Concomitant]
  9. DIGOXIN [Concomitant]
  10. ULTRAM [Concomitant]
  11. AMBIEN [Concomitant]

REACTIONS (10)
  - FACIAL BONES FRACTURE [None]
  - FALL [None]
  - GENERAL PHYSICAL HEALTH DETERIORATION [None]
  - INFLUENZA [None]
  - JOINT SPRAIN [None]
  - OSTEONECROSIS [None]
  - PNEUMONIA [None]
  - PNEUMONIA ASPIRATION [None]
  - RIB FRACTURE [None]
  - WRIST FRACTURE [None]
